FAERS Safety Report 6085622-7 (Version None)
Quarter: 2009Q1

REPORT INFORMATION
  Report Type: 
  Country: None (occurrence: None)
  Receive Date: 20090220
  Receipt Date: 20090209
  Transmission Date: 20090719
  Serious: Yes (Death, Other)
  Sender: FDA-Public Use
  Company Number: GB-AVENTIS-200911494GDDC

PATIENT
  Age: 83 Year
  Sex: Female

DRUGS (2)
  1. GLIBENCLAMIDE [Suspect]
     Indication: TYPE 2 DIABETES MELLITUS
     Route: 048
  2. METFORMIN [Suspect]
     Indication: TYPE 2 DIABETES MELLITUS
     Route: 048

REACTIONS (5)
  - CARDIAC FAILURE ACUTE [None]
  - DEATH [None]
  - HYPOGLYCAEMIA [None]
  - LACTIC ACIDOSIS [None]
  - RENAL FAILURE ACUTE [None]
